FAERS Safety Report 11686054 (Version 1)
Quarter: 2015Q4

REPORT INFORMATION
  Report Type: Report from Study
  Country: US (occurrence: US)
  Receive Date: 20151030
  Receipt Date: 20151030
  Transmission Date: 20160304
  Serious: Yes (Death)
  Sender: FDA-Public Use
  Company Number: US-ABBVIE-15K-163-1489800-00

PATIENT
  Sex: Female

DRUGS (1)
  1. HUMIRA [Suspect]
     Active Substance: ADALIMUMAB
     Indication: RHEUMATOID ARTHRITIS
     Route: 058
     Dates: start: 20150827, end: 20151011

REACTIONS (3)
  - Platelet count decreased [Fatal]
  - Bone marrow disorder [Fatal]
  - White blood cell count decreased [Fatal]

NARRATIVE: CASE EVENT DATE: 2015
